FAERS Safety Report 8935548 (Version 1)
Quarter: 2012Q4

REPORT INFORMATION
  Report Type: 
  Country: GB (occurrence: GB)
  Receive Date: 20121130
  Receipt Date: 20121130
  Transmission Date: 20130627
  Serious: Yes (Other)
  Sender: FDA-Public Use
  Company Number: PHHY2012GB108626

PATIENT
  Age: 72 Year

DRUGS (10)
  1. METRONIDAZOLE [Suspect]
     Route: 041
  2. AMOXICILLIN\CLAVULANATE POTASSIUM [Suspect]
     Route: 041
  3. TRIMETHOPRIM [Suspect]
     Route: 048
  4. FLUCLOXACILLIN [Suspect]
     Route: 048
  5. CEFUROXIME [Suspect]
     Route: 041
  6. PIPERACILLIN, TAZOBACTAM [Suspect]
     Route: 041
  7. CEFTRIAXONE [Suspect]
     Route: 041
  8. ERYTHROMYCIN [Suspect]
     Route: 048
  9. MEROPENEM [Suspect]
     Route: 041
  10. TAZOBACTAM [Suspect]
     Route: 042

REACTIONS (1)
  - Clostridium test positive [Recovered/Resolved]
